FAERS Safety Report 7465695-7 (Version None)
Quarter: 2011Q2

REPORT INFORMATION
  Report Type: 
  Country: None (occurrence: None)
  Receive Date: 20110509
  Receipt Date: 20110429
  Transmission Date: 20111010
  Serious: Yes (Hospitalization, Other)
  Sender: FDA-Public Use
  Company Number: B0713068A

PATIENT
  Sex: Male

DRUGS (3)
  1. ROSUVASTATIN CALCIUM [Concomitant]
     Route: 048
  2. ASPIRIN [Concomitant]
     Route: 048
  3. OMACOR [Suspect]
     Dosage: 1000MG PER DAY
     Route: 048
     Dates: start: 20040701, end: 20110401

REACTIONS (3)
  - CORONARY ARTERY BYPASS [None]
  - DRUG INEFFECTIVE [None]
  - HEART VALVE REPLACEMENT [None]
